FAERS Safety Report 8575856-1 (Version None)
Quarter: 2012Q2

REPORT INFORMATION
  Report Type: 
  Country: None (occurrence: None)
  Receive Date: 20120423
  Receipt Date: 20100830
  Transmission Date: 20120825
  Serious: Yes (Other)
  Sender: FDA-Public Use
  Company Number: PHHY2010US57480

PATIENT
  Sex: Female
  Weight: 90 kg

DRUGS (1)
  1. EXJADE [Suspect]
     Dosage: 500 MG/ DAILY, ORAL
     Route: 048
     Dates: start: 20100711

REACTIONS (1)
  - RENAL IMPAIRMENT [None]
